FAERS Safety Report 11579532 (Version 1)
Quarter: 2015Q3

REPORT INFORMATION
  Report Type: Spontaneous
  Country: US (occurrence: US)
  Receive Date: 20150930
  Receipt Date: 20150930
  Transmission Date: 20151125
  Serious: Yes (Other)
  Sender: FDA-Public Use
  Company Number: US-PFIZER INC-2015322626

PATIENT
  Sex: Female

DRUGS (1)
  1. ZOLOFT [Suspect]
     Active Substance: SERTRALINE HYDROCHLORIDE
     Dosage: UNK, LOW DOSAGE

REACTIONS (7)
  - Balance disorder [Unknown]
  - Fear of falling [Unknown]
  - Stress [Unknown]
  - Fatigue [Unknown]
  - Hemiparesis [Unknown]
  - Fall [Unknown]
  - Anxiety [Unknown]
